FAERS Safety Report 10064164 (Version 1)
Quarter: 2014Q2

REPORT INFORMATION
  Report Type: Spontaneous
  Country: JP (occurrence: None)
  Receive Date: 20140404
  Receipt Date: 20140404
  Transmission Date: 20141212
  Serious: Yes (Death, Other)
  Sender: FDA-Public Use
  Company Number: 2014JP00317

PATIENT
  Age: 72 Year
  Sex: Male

DRUGS (2)
  1. CARBOPLATIN (CARBOPLATIN) INJECTION [Suspect]
     Indication: NON-SMALL CELL LUNG CANCER STAGE IIIA
  2. PACLITAXEL (PACLITAXEL) [Suspect]
     Indication: NON-SMALL CELL LUNG CANCER STAGE IIIA

REACTIONS (4)
  - Febrile neutropenia [None]
  - Septic shock [None]
  - Candida infection [None]
  - Ileus [None]
